FAERS Safety Report 22064314 (Version 2)
Quarter: 2023Q1

REPORT INFORMATION
  Report Type: Spontaneous
  Country: US (occurrence: US)
  Receive Date: 20230306
  Receipt Date: 20230322
  Transmission Date: 20230418
  Serious: No
  Sender: FDA-Public Use
  Company Number: US-PFIZER INC-202300085958

PATIENT
  Age: 64 Year
  Sex: Female
  Weight: 61.23 kg

DRUGS (2)
  1. ESTRING [Suspect]
     Active Substance: ESTRADIOL
     Indication: Vaginal haemorrhage
     Dosage: 2 MG, CYCLIC (EVERY 3 MONTHS)
     Route: 067
  2. ESTRING [Suspect]
     Active Substance: ESTRADIOL
     Indication: Vulvovaginal dryness

REACTIONS (2)
  - Device use issue [Unknown]
  - Product prescribing error [Unknown]
